FAERS Safety Report 13510596 (Version 1)
Quarter: 2017Q2

REPORT INFORMATION
  Report Type: Spontaneous
  Country: DE (occurrence: DE)
  Receive Date: 20170503
  Receipt Date: 20170503
  Transmission Date: 20170830
  Serious: Yes (Death)
  Sender: FDA-Public Use
  Company Number: DE-UCBSA-2017017118

PATIENT
  Age: 80 Year
  Sex: Female

DRUGS (9)
  1. MIDAZOLAM [Concomitant]
     Active Substance: MIDAZOLAM HYDROCHLORIDE
     Indication: STATUS EPILEPTICUS
     Dosage: 10 MG PER DAY
  2. LEVETIRACETAM. [Suspect]
     Active Substance: LEVETIRACETAM
     Indication: OFF LABEL USE
     Dosage: 4000 MG PER DAY
  3. LEVETIRACETAM. [Suspect]
     Active Substance: LEVETIRACETAM
     Indication: STATUS EPILEPTICUS
  4. LACOSAMIDE. [Suspect]
     Active Substance: LACOSAMIDE
     Indication: STATUS EPILEPTICUS
  5. BRIVARACETAM [Concomitant]
     Active Substance: BRIVARACETAM
     Dosage: 200 MG PER DAY
  6. VALPROATE [Concomitant]
     Active Substance: VALPROIC ACID
     Indication: STATUS EPILEPTICUS
     Dosage: 1600 MG PER DAY
  7. BRIVARACETAM [Concomitant]
     Active Substance: BRIVARACETAM
     Indication: STATUS EPILEPTICUS
     Dosage: 100 MG PER DAY
  8. LACOSAMIDE. [Suspect]
     Active Substance: LACOSAMIDE
     Indication: OFF LABEL USE
     Dosage: 400 MG PER DAY
  9. TOPIRAMATE. [Concomitant]
     Active Substance: TOPIRAMATE
     Indication: STATUS EPILEPTICUS
     Dosage: 600 MG PER DAY

REACTIONS (3)
  - Death [Fatal]
  - Off label use [Unknown]
  - Overdose [Unknown]
